FAERS Safety Report 9444892 (Version 1)
Quarter: 2013Q3

REPORT INFORMATION
  Report Type: Spontaneous
  Country: US (occurrence: None)
  Receive Date: 20130802
  Receipt Date: 20130802
  Transmission Date: 20140515
  Serious: Yes (Other)
  Sender: FDA-Public Use
  Company Number: SYM-2013-07624

PATIENT
  Age: 48 Year
  Sex: Female

DRUGS (1)
  1. XENAZINE (TETRABENAZINE) (12.5 MILLIGRAM, TABLET) (TETRABENAZINE) [Suspect]
     Indication: HUNTINGTON^S DISEASE
     Dosage: 12.5 MG, 2 TABLETS IN THE MORNING AND 1 TABLET IN THE EVEING, ORAL
     Route: 048
     Dates: start: 20130522, end: 20130710

REACTIONS (2)
  - Urinary tract infection [None]
  - Nephrolithiasis [None]
